FAERS Safety Report 9238215 (Version 1)
Quarter: 2013Q2

REPORT INFORMATION
  Report Type: Spontaneous
  Country: JP (occurrence: JP)
  Receive Date: 20130418
  Receipt Date: 20130418
  Transmission Date: 20140414
  Serious: Yes (Other)
  Sender: FDA-Public Use
  Company Number: JP-UCBSA-079233

PATIENT
  Age: 12 Year
  Sex: Male

DRUGS (4)
  1. XYZAL [Suspect]
     Indication: URTICARIA CHRONIC
     Route: 048
     Dates: start: 20130131, end: 20130201
  2. KIPRES [Concomitant]
     Indication: URTICARIA CHRONIC
     Route: 048
     Dates: start: 20121220
  3. DEPAKENE [Concomitant]
     Indication: CONVULSION
     Route: 048
  4. ALLEGRA [Concomitant]
     Indication: URTICARIA CHRONIC

REACTIONS (5)
  - Grand mal convulsion [Recovered/Resolved]
  - Loss of consciousness [Unknown]
  - Altered state of consciousness [Recovered/Resolved]
  - Disorientation [Unknown]
  - Somnolence [Unknown]
